FAERS Safety Report 8109673-3 (Version None)
Quarter: 2012Q1

REPORT INFORMATION
  Report Type: 
  Country: None (occurrence: None)
  Receive Date: 20120202
  Receipt Date: 20120118
  Transmission Date: 20120608
  Serious: No
  Sender: FDA-Public Use
  Company Number: US-AMGEN-USASP2012003736

PATIENT
  Age: 64 Year
  Sex: Female

DRUGS (3)
  1. ENBREL [Suspect]
     Indication: OSTEOARTHRITIS
  2. ENBREL [Suspect]
     Indication: RHEUMATOID ARTHRITIS
     Dosage: 50 MG, QWK
     Dates: start: 20050101
  3. TREXALL [Concomitant]
     Dosage: UNK

REACTIONS (5)
  - RHEUMATOID ARTHRITIS [None]
  - PAIN IN EXTREMITY [None]
  - BENIGN SOFT TISSUE NEOPLASM [None]
  - FUNGAL INFECTION [None]
  - TOE AMPUTATION [None]
